FAERS Safety Report 23401624 (Version 1)
Quarter: 2024Q1

REPORT INFORMATION
  Report Type: Report from Study
  Country: US (occurrence: US)
  Receive Date: 20240115
  Receipt Date: 20240115
  Transmission Date: 20240410
  Serious: Yes (Other)
  Sender: FDA-Public Use
  Company Number: US-GILEAD-2024-0658161

PATIENT
  Sex: Male

DRUGS (1)
  1. AZTREONAM LYSINE [Suspect]
     Active Substance: AZTREONAM LYSINE
     Indication: Cystic fibrosis
     Dosage: 75 MG, TID VIA ALTERA NEBULIZER CYCLING 28 DAYS ON, THEN 28 DAYS OFF
     Route: 055

REACTIONS (3)
  - Cystic fibrosis [Unknown]
  - Autoimmune thyroiditis [Unknown]
  - Off label use [Unknown]
